FAERS Safety Report 8336949-7 (Version None)
Quarter: 2012Q2

REPORT INFORMATION
  Report Type: 
  Country: None (occurrence: None)
  Receive Date: 20120504
  Receipt Date: 20120314
  Transmission Date: 20120825
  Serious: No
  Sender: FDA-Public Use
  Company Number: US-GLAXOSMITHKLINE-A0969742A

PATIENT
  Age: 40 Year
  Sex: Female

DRUGS (2)
  1. PAIN MEDICATION [Concomitant]
  2. HORIZANT [Suspect]
     Indication: RESTLESS LEGS SYNDROME
     Route: 048

REACTIONS (1)
  - AMNESIA [None]
